FAERS Safety Report 12130484 (Version 1)
Quarter: 2016Q1

REPORT INFORMATION
  Report Type: Spontaneous
  Country: US (occurrence: None)
  Receive Date: 20160229
  Receipt Date: 20160229
  Transmission Date: 20160526
  Serious: Yes (Disabling)
  Sender: FDA-Public Use
  Company Number: None

PATIENT
  Age: 45 Year
  Sex: Male
  Weight: 113.4 kg

DRUGS (4)
  1. BLOOD PRESSURE MEDS [Concomitant]
  2. ALBUTEROL SULFATE. [Suspect]
     Active Substance: ALBUTEROL SULFATE
     Indication: SINUS DISORDER
     Route: 055
     Dates: start: 20110215, end: 20150211
  3. INHALER [Concomitant]
     Active Substance: UNSPECIFIED INGREDIENT
  4. ALBUTEROL SULFATE. [Suspect]
     Active Substance: ALBUTEROL SULFATE
     Indication: ASTHMA
     Route: 055
     Dates: start: 20110215, end: 20150211

REACTIONS (3)
  - Nasal polyps [None]
  - Sinusitis [None]
  - Rhinitis [None]

NARRATIVE: CASE EVENT DATE: 20160226
